FAERS Safety Report 25037832 (Version 1)
Quarter: 2025Q1

REPORT INFORMATION
  Report Type: Spontaneous
  Country: FR (occurrence: FR)
  Receive Date: 20250304
  Receipt Date: 20250304
  Transmission Date: 20250408
  Serious: Yes (Other)
  Sender: B BRAUN
  Company Number: FR-B.Braun Medical Inc.-2172207

PATIENT
  Age: 3 Day
  Sex: Male
  Weight: 0.58 kg

DRUGS (1)
  1. ACETAMINOPHEN [Suspect]
     Active Substance: ACETAMINOPHEN
     Indication: Medication error
     Dates: start: 20250130, end: 20250130

REACTIONS (3)
  - Incorrect dose administered [Recovered/Resolved]
  - Metabolic acidosis [Recovered/Resolved]
  - Drug level increased [Recovered/Resolved]
